FAERS Safety Report 25285002 (Version 2)
Quarter: 2025Q2

REPORT INFORMATION
  Report Type: Report from Study
  Country: BR (occurrence: BR)
  Receive Date: 20250508
  Receipt Date: 20250626
  Transmission Date: 20250717
  Serious: No
  Sender: BIOGEN
  Company Number: BR-BIOGEN-2025BI01310266

PATIENT
  Sex: Female
  Weight: 42 kg

DRUGS (1)
  1. TYSABRI [Suspect]
     Active Substance: NATALIZUMAB
     Indication: Multiple sclerosis
     Route: 050
     Dates: start: 2015

REACTIONS (1)
  - Weight increased [Unknown]
